FAERS Safety Report 5295260-1 (Version None)
Quarter: 2007Q1

REPORT INFORMATION
  Report Type: 
  Country: None (occurrence: None)
  Receive Date: 20070201
  Receipt Date: 20061021
  Transmission Date: 20070707
  Serious: No
  Sender: FDA-Public Use
  Company Number: 2006PV023708

PATIENT
  Age: 77 Year
  Sex: Female
  Weight: 88.4514 kg

DRUGS (12)
  1. BYETTA [Suspect]
     Indication: DIABETES MELLITUS NON-INSULIN-DEPENDENT
     Dosage: SEE IMAGE
     Route: 058
     Dates: start: 20060701, end: 20060801
  2. BYETTA [Suspect]
     Indication: DIABETES MELLITUS NON-INSULIN-DEPENDENT
     Dosage: SEE IMAGE
     Route: 058
     Dates: start: 20060801
  3. GLYBURIDE [Concomitant]
  4. METFORMIN HCL [Concomitant]
  5. DIOVAN [Concomitant]
  6. METOPROLOL SUCCINATE [Concomitant]
  7. LOVASTATIN [Concomitant]
  8. CARDIZEM [Concomitant]
  9. ASPIRIN [Concomitant]
  10. HORMONES [Concomitant]
  11. PLAVIX [Concomitant]
  12. DEMIDEX [Concomitant]

REACTIONS (7)
  - ARTHRITIS [None]
  - BLOOD GLUCOSE INCREASED [None]
  - FALL [None]
  - INJECTION SITE BRUISING [None]
  - INJECTION SITE REACTION [None]
  - PARKINSON'S DISEASE [None]
  - SPINAL COLUMN STENOSIS [None]
